FAERS Safety Report 19821188 (Version 2)
Quarter: 2024Q1

REPORT INFORMATION
  Report Type: Spontaneous
  Country: US (occurrence: US)
  Receive Date: 20210913
  Receipt Date: 20240201
  Transmission Date: 20240410
  Serious: No
  Sender: FDA-Public Use
  Company Number: US-NOVEN PHARMACEUTICALS, INC.-2021US002448

PATIENT
  Sex: Female

DRUGS (1)
  1. COMBIPATCH [Suspect]
     Active Substance: ESTRADIOL\NORETHINDRONE ACETATE
     Indication: Menopausal symptoms
     Dosage: 50/140, 2/WEEK (EVERY WEDNESDAYS AND SATURDAY )
     Route: 062
     Dates: start: 2017

REACTIONS (4)
  - Irritability [Recovered/Resolved]
  - Therapeutic product effect incomplete [Recovered/Resolved]
  - Adhesive tape use [Recovered/Resolved]
  - Product adhesion issue [Recovered/Resolved]

NARRATIVE: CASE EVENT DATE: 20200101
